FAERS Safety Report 15467722 (Version 1)
Quarter: 2018Q4

REPORT INFORMATION
  Report Type: Spontaneous
  Country: US (occurrence: US)
  Receive Date: 20181001
  Receipt Date: 20181001
  Transmission Date: 20190204
  Serious: No
  Sender: FDA-Public Use
  Company Number: None

PATIENT
  Sex: Female

DRUGS (1)
  1. HUMIRA [Suspect]
     Active Substance: ADALIMUMAB
     Indication: SKIN CANCER
     Dosage: ?          OTHER DOSE:TRADITIOINAL START;?
     Route: 058
     Dates: start: 201809

REACTIONS (3)
  - Depression [None]
  - Fatigue [None]
  - Emotional disorder [None]
